FAERS Safety Report 4748502-2 (Version None)
Quarter: 2005Q3

REPORT INFORMATION
  Report Type: 
  Country: None (occurrence: None)
  Receive Date: 20050817
  Receipt Date: 20050808
  Transmission Date: 20060218
  Serious: Yes (Other)
  Sender: FDA-Public Use
  Company Number: 2005113593

PATIENT
  Age: 51 Year
  Sex: Male
  Weight: 82.5547 kg

DRUGS (3)
  1. XANAX [Suspect]
     Indication: ILL-DEFINED DISORDER
  2. BENADRYL [Suspect]
     Indication: ILL-DEFINED DISORDER
  3. FLONASE [Suspect]
     Indication: ILL-DEFINED DISORDER

REACTIONS (3)
  - CONVULSION [None]
  - INSOMNIA [None]
  - SOMNOLENCE [None]
